FAERS Safety Report 13836118 (Version 1)
Quarter: 2017Q3

REPORT INFORMATION
  Report Type: Spontaneous
  Country: FR (occurrence: FR)
  Receive Date: 20170804
  Receipt Date: 20170804
  Transmission Date: 20171127
  Serious: Yes (Hospitalization)
  Sender: FDA-Public Use
  Company Number: FR-SA-2017SA139414

PATIENT
  Age: 67 Year
  Sex: Female

DRUGS (8)
  1. LOVENOX [Suspect]
     Active Substance: ENOXAPARIN SODIUM
     Indication: THROMBOSIS PROPHYLAXIS
     Route: 058
  2. SPASFON [Suspect]
     Active Substance: PHLOROGLUCINOL\1,3,5-TRIMETHOXYBENZENE
     Route: 048
  3. ATEZOLIZUMAB. [Suspect]
     Active Substance: ATEZOLIZUMAB
     Indication: TRANSITIONAL CELL CARCINOMA
     Route: 042
     Dates: start: 20170511, end: 20170619
  4. RAMIPRIL. [Suspect]
     Active Substance: RAMIPRIL
     Indication: HYPERTENSION
     Dosage: DIVISIBLE TABLET
     Route: 048
  5. TEMESTA [Suspect]
     Active Substance: LORAZEPAM
     Indication: SLEEP DISORDER
     Dosage: DIVISIBLE TABLET
     Route: 048
  6. LOXEN [Suspect]
     Active Substance: NICARDIPINE HYDROCHLORIDE
     Indication: HYPERTENSION
     Dosage: DIVISIBLE TABLET
     Route: 048
  7. PREDNISOLONE. [Suspect]
     Active Substance: PREDNISOLONE
     Route: 048
  8. SMECTA [Suspect]
     Active Substance: MONTMORILLONITE
     Indication: DIARRHOEA
     Route: 048

REACTIONS (1)
  - Ischaemic stroke [Recovering/Resolving]

NARRATIVE: CASE EVENT DATE: 20170709
